FAERS Safety Report 6232758-3 (Version None)
Quarter: 2009Q2

REPORT INFORMATION
  Report Type: 
  Country: None (occurrence: None)
  Receive Date: 20090612
  Receipt Date: 20090604
  Transmission Date: 20091009
  Serious: Yes (Other)
  Sender: FDA-Public Use
  Company Number: DSA_33782_2009

PATIENT
  Sex: Female

DRUGS (5)
  1. XENAZINE [Suspect]
     Indication: DRUG USE FOR UNKNOWN INDICATION
     Dosage: (25 MG BID)
     Dates: start: 20090220, end: 20090327
  2. CELEXA [Concomitant]
  3. TRAZODONE HCL [Concomitant]
  4. LYRICA [Concomitant]
  5. UNSPECIFIED MEDICATION [Concomitant]

REACTIONS (1)
  - NO THERAPEUTIC RESPONSE [None]
